FAERS Safety Report 5433812-6 (Version None)
Quarter: 2007Q3

REPORT INFORMATION
  Report Type: 
  Country: None (occurrence: None)
  Receive Date: 20070831
  Receipt Date: 20070625
  Transmission Date: 20080115
  Serious: No
  Sender: FDA-Public Use
  Company Number: A0659606A

PATIENT
  Age: 43 Year

DRUGS (1)
  1. ALLI [Suspect]
     Route: 048
     Dates: start: 20070619

REACTIONS (3)
  - DYSMENORRHOEA [None]
  - METRORRHAGIA [None]
  - STEATORRHOEA [None]
